FAERS Safety Report 25524657 (Version 1)
Quarter: 2025Q3

REPORT INFORMATION
  Report Type: Spontaneous
  Country: US (occurrence: None)
  Receive Date: 20250705
  Receipt Date: 20250705
  Transmission Date: 20251021
  Serious: Yes (Disabling)
  Sender: FDA-CTU
  Company Number: None

PATIENT
  Sex: Female

DRUGS (1)
  1. EFFEXOR [Suspect]
     Active Substance: VENLAFAXINE HYDROCHLORIDE
     Indication: Depression
     Dates: start: 20220601, end: 20220601

REACTIONS (5)
  - Loss of libido [None]
  - Emotional poverty [None]
  - Genital hypoaesthesia [None]
  - Memory impairment [None]
  - Urinary retention [None]

NARRATIVE: CASE EVENT DATE: 20220601
